FAERS Safety Report 5734204-2 (Version None)
Quarter: 2008Q2

REPORT INFORMATION
  Report Type: 
  Country: None (occurrence: None)
  Receive Date: 20080510
  Receipt Date: 20080505
  Transmission Date: 20081010
  Serious: Yes (Life-Threatening, Hospitalization)
  Sender: FDA-Public Use
  Company Number: PHRM2008FR01454

PATIENT
  Age: 71 Year
  Sex: Female

DRUGS (11)
  1. DEPAKOTE [Suspect]
     Indication: BIPOLAR I DISORDER
     Dosage: 500 MG, BID
     Route: 048
     Dates: start: 20080410, end: 20080418
  2. OXAZEPAM [Suspect]
     Indication: DRUG DEPENDENCE
     Dosage: 50 MG/DAY
     Route: 048
     Dates: start: 20080418, end: 20080418
  3. MODOPAR [Suspect]
     Indication: PARKINSON'S DISEASE
     Dosage: 150/600 MG/DAY
     Route: 048
     Dates: end: 20080418
  4. GARDENAL [Suspect]
     Indication: EPILEPSY
     Dosage: 100 MG, QD
     Route: 048
  5. STALEVO 100 [Suspect]
     Indication: PARKINSON'S DISEASE
     Dosage: 200/150/37.5 MG/DAY
     Route: 048
     Dates: end: 20080418
  6. LEVOTHYROXINE SODIUM [Concomitant]
     Indication: HYPOTHYROIDISM
     Dosage: 75 MG, QD
     Route: 048
  7. PAROXETINE HCL [Concomitant]
     Dosage: 20 MG, QD
     Route: 048
  8. TERALITHE [Suspect]
     Dosage: 250 MG, QD
     Route: 048
     Dates: end: 20080331
  9. HALDOL [Concomitant]
     Dosage: 5 MG, QD
     Route: 048
     Dates: end: 20080331
  10. FRAXIPARINE [Concomitant]
     Dosage: 3800 IU, QD
     Route: 058
  11. ANEXATE [Concomitant]
     Indication: DIAGNOSTIC PROCEDURE
     Dates: start: 20080418, end: 20080418

REACTIONS (26)
  - ANTIPSYCHOTIC DRUG LEVEL ABOVE THERAPEUTIC [None]
  - BLOOD CREATININE INCREASED [None]
  - BLOOD LACTIC ACID DECREASED [None]
  - BLOOD SODIUM INCREASED [None]
  - BLOOD UREA INCREASED [None]
  - COMA [None]
  - CONFUSIONAL STATE [None]
  - CREATININE RENAL CLEARANCE DECREASED [None]
  - DEHYDRATION [None]
  - DISTURBANCE IN ATTENTION [None]
  - DRUG DEPENDENCE [None]
  - ELECTROENCEPHALOGRAM ABNORMAL [None]
  - FLUID REPLACEMENT [None]
  - GLASGOW COMA SCALE ABNORMAL [None]
  - HALLUCINATION, VISUAL [None]
  - HYPERCAPNIA [None]
  - HYPOALBUMINAEMIA [None]
  - HYPOVENTILATION [None]
  - HYPOXIA [None]
  - KNEE ARTHROPLASTY [None]
  - MUTISM [None]
  - NEPHROGENIC DIABETES INSIPIDUS [None]
  - PNEUMONIA ASPIRATION [None]
  - POLYURIA [None]
  - PYREXIA [None]
  - RENAL FAILURE [None]
